FAERS Safety Report 7269520-9 (Version None)
Quarter: 2011Q1

REPORT INFORMATION
  Report Type: 
  Country: None (occurrence: None)
  Receive Date: 20110202
  Receipt Date: 20110119
  Transmission Date: 20110831
  Serious: Yes (Hospitalization, Other)
  Sender: FDA-Public Use
  Company Number: US-RANBAXY-2010RR-40693

PATIENT
  Sex: Male

DRUGS (4)
  1. LEVAQUIN [Suspect]
     Indication: PNEUMONIA
     Dosage: UNK
     Route: 048
     Dates: start: 20060322, end: 20060331
  2. LEVAQUIN [Suspect]
     Route: 042
  3. CEFTRIAXONE [Concomitant]
     Indication: PNEUMONIA
     Route: 042
  4. CIPROFLOXACIN [Suspect]
     Indication: PNEUMONIA
     Dosage: UNK
     Route: 065
     Dates: start: 20060101

REACTIONS (6)
  - ROTATOR CUFF SYNDROME [None]
  - ARTHRALGIA [None]
  - MYALGIA [None]
  - JOINT DISLOCATION [None]
  - TENDON RUPTURE [None]
  - NEUROPATHY PERIPHERAL [None]
